FAERS Safety Report 21198242 (Version 1)
Quarter: 2022Q3

REPORT INFORMATION
  Report Type: Spontaneous
  Country: US (occurrence: US)
  Receive Date: 20220811
  Receipt Date: 20220811
  Transmission Date: 20221027
  Serious: No
  Sender: FDA-Public Use
  Company Number: US-SA-SAC20220808000337

PATIENT
  Sex: Male

DRUGS (7)
  1. DUPIXENT [Suspect]
     Active Substance: DUPILUMAB
     Indication: Asthma
     Dosage: 300 MG, QOW
     Route: 058
     Dates: start: 20210202
  2. ALBUTEROL SULFATE [Concomitant]
     Active Substance: ALBUTEROL SULFATE
  3. BREO ELLIPTA [Concomitant]
     Active Substance: FLUTICASONE FUROATE\VILANTEROL TRIFENATATE
  4. DESONIDE [Concomitant]
     Active Substance: DESONIDE
  5. FLUOCINONIDE [Concomitant]
     Active Substance: FLUOCINONIDE
  6. MONTELUKAST [Concomitant]
     Active Substance: MONTELUKAST SODIUM
  7. PREDNISONE [Concomitant]
     Active Substance: PREDNISONE

REACTIONS (3)
  - Asthma [Unknown]
  - Impaired quality of life [Unknown]
  - Drug ineffective [Unknown]
